FAERS Safety Report 4313625-9 (Version None)
Quarter: 2004Q1

REPORT INFORMATION
  Report Type: 
  Country: None (occurrence: None)
  Receive Date: 20040305
  Receipt Date: 20040223
  Transmission Date: 20041129
  Serious: No
  Sender: FDA-Public Use
  Company Number: 04H-163-0251152-00

PATIENT
  Age: 32 Year
  Sex: Female
  Weight: 73 kg

DRUGS (5)
  1. MORPHINE SULFATE INJ [Suspect]
     Indication: SPINAL ANAESTHESIA
     Dosage: 0.2 MG, NOT REPORTED, INTRASPINAL
     Route: 024
  2. BUPIVACAINE [Suspect]
     Indication: SPINAL ANAESTHESIA
     Dosage: 12 MG, INTRASPINAL
     Route: 024
  3. FENTANYL [Suspect]
     Indication: SPINAL ANAESTHESIA
     Dosage: 10 MCG, INTRASPINAL
     Route: 024
  4. RISPERIDONE [Suspect]
     Indication: BIPOLAR DISORDER
     Dosage: 2 MG, EVERY NIGHT
  5. LITHIUM [Concomitant]

REACTIONS (5)
  - CAESAREAN SECTION [None]
  - COMPLICATIONS OF MATERNAL EXPOSURE TO THERAPEUTIC DRUGS [None]
  - DRUG INTERACTION [None]
  - HEART RATE INCREASED [None]
  - HYPOTENSION [None]
